FAERS Safety Report 5522889-5 (Version None)
Quarter: 2007Q4

REPORT INFORMATION
  Report Type: 
  Country: None (occurrence: None)
  Receive Date: 20071116
  Receipt Date: 20071107
  Transmission Date: 20080405
  Serious: Yes (Hospitalization)
  Sender: FDA-Public Use
  Company Number: 23008J07USA

PATIENT
  Age: 44 Year
  Sex: Male
  Weight: 51.2565 kg

DRUGS (5)
  1. REBIF [Suspect]
     Indication: MULTIPLE SCLEROSIS
     Dosage: 22 MCG, 3 IN 1 WEEKS, SUBCUTANEOUS
     Route: 058
     Dates: start: 20070907
  2. LEXAPRO [Concomitant]
  3. LAMITCAL                  (LAMOTRIGINE) [Concomitant]
  4. MULTIVITAMIN               (MULTIVITAMIN /00831701/) [Concomitant]
  5. BOOST           (BOOST) [Concomitant]

REACTIONS (3)
  - COLLAPSE OF LUNG [None]
  - INFLUENZA LIKE ILLNESS [None]
  - PNEUMONIA [None]
